FAERS Safety Report 8617055 (Version 3)
Quarter: 2014Q1

REPORT INFORMATION
  Report Type: Spontaneous
  Country: US (occurrence: US)
  Receive Date: 20120615
  Receipt Date: 20140113
  Transmission Date: 20141002
  Serious: Yes (Disabling)
  Sender: FDA-Public Use
  Company Number: US-ASTRAZENECA-2012SE36193

PATIENT
  Age: 550 Month
  Sex: Female

DRUGS (9)
  1. NEXIUM [Suspect]
     Indication: GASTROOESOPHAGEAL REFLUX DISEASE
     Route: 048
     Dates: start: 2006, end: 2007
  2. BONIVA [Concomitant]
     Dosage: 1 A MONTH
  3. VIT D [Concomitant]
     Dosage: 15000 UNIT 1 A WEEK
  4. CALTRATE D [Concomitant]
     Dosage: DAILY
  5. FLEXERIL [Concomitant]
     Indication: MUSCLE SPASMS
     Dosage: 10 MG 1/2-1 PO Q TID
     Route: 048
     Dates: start: 201202
  6. PANTOPRAZOLE [Concomitant]
     Route: 048
     Dates: start: 20120402
  7. ALLEGRA [Concomitant]
     Indication: MULTIPLE ALLERGIES
     Route: 048
     Dates: start: 20090629
  8. ALLEGRA [Concomitant]
     Indication: SINUS DISORDER
     Route: 048
     Dates: start: 20090629
  9. KEFLEX [Concomitant]
     Route: 048
     Dates: start: 20100629

REACTIONS (11)
  - Chronic obstructive pulmonary disease [Unknown]
  - Osteoarthritis [Unknown]
  - Arthritis [Unknown]
  - Rheumatoid arthritis [Unknown]
  - Osteoporosis [Unknown]
  - Multiple fractures [Unknown]
  - Calcium deficiency [Unknown]
  - Cataract [Unknown]
  - Bone disorder [Unknown]
  - Vitamin D deficiency [Unknown]
  - Depression [Unknown]
